FAERS Safety Report 5689188-2 (Version None)
Quarter: 2008Q1

REPORT INFORMATION
  Report Type: 
  Country: None (occurrence: None)
  Receive Date: 20080331
  Receipt Date: 20080320
  Transmission Date: 20080703
  Serious: No
  Sender: FDA-Public Use
  Company Number: FR-PFIZER INC-2008018241

PATIENT
  Sex: Female
  Weight: 41 kg

DRUGS (17)
  1. VORICONAZOLE [Suspect]
     Route: 048
  2. SERTRALINE [Interacting]
     Dosage: DAILY DOSE:100MG
     Route: 048
  3. DILTIAZEM [Interacting]
     Route: 048
  4. BOSENTAN [Interacting]
     Route: 048
  5. AZATHIOPRINE [Concomitant]
  6. BOSENTAN [Concomitant]
  7. PREDNISONE [Concomitant]
  8. RAMIPRIL [Concomitant]
  9. PANTOPRAZOLE SODIUM [Concomitant]
  10. ZOPICLONE [Concomitant]
  11. FERROUS SULFATE/FOLIC ACID [Concomitant]
  12. PIPERACILLIN AND TAZOBACTAM [Concomitant]
  13. CIPROFLOXACIN [Concomitant]
  14. FOSCARNET SODIUM [Concomitant]
  15. CILASTATIN SODIUM W/IMIPENEM [Concomitant]
  16. AMIKACIN [Concomitant]
  17. VANCOMYCIN [Concomitant]

REACTIONS (13)
  - ALANINE AMINOTRANSFERASE INCREASED [None]
  - ASPARTATE AMINOTRANSFERASE INCREASED [None]
  - ASPERGILLOSIS [None]
  - BLOOD CREATINE PHOSPHOKINASE INCREASED [None]
  - BLOOD LACTATE DEHYDROGENASE INCREASED [None]
  - CHOLESTASIS [None]
  - HAEMOGLOBIN DECREASED [None]
  - HYPOPHOSPHATAEMIA [None]
  - NO ADVERSE EVENT [None]
  - PANCYTOPENIA [None]
  - PNEUMONIA [None]
  - THROMBOCYTOPENIA [None]
  - WHITE BLOOD CELL COUNT DECREASED [None]
